FAERS Safety Report 4462661-0 (Version None)
Quarter: 2004Q3

REPORT INFORMATION
  Report Type: 
  Country: None (occurrence: None)
  Receive Date: 20040927
  Receipt Date: 20040927
  Transmission Date: 20050211
  Serious: No
  Sender: FDA-Public Use
  Company Number: None

PATIENT
  Sex: Female

DRUGS (1)
  1. PANGLOBULIN [Suspect]
     Indication: MYASTHENIA GRAVIS
     Dosage: 48 GMS QD X 1 DAY IV Q 3 MONTHS
     Route: 042
     Dates: start: 20040908

REACTIONS (2)
  - CHILLS [None]
  - INFUSION RELATED REACTION [None]
